FAERS Safety Report 21538702 (Version 1)
Quarter: 2022Q4

REPORT INFORMATION
  Report Type: Spontaneous
  Country: CN (occurrence: CN)
  Receive Date: 20221102
  Receipt Date: 20221102
  Transmission Date: 20230112
  Serious: Yes (Hospitalization)
  Sender: FDA-Public Use
  Company Number: None

PATIENT
  Age: 87 Year
  Sex: Male
  Weight: 73 kg

DRUGS (8)
  1. INSULIN ASPART [Suspect]
     Active Substance: INSULIN ASPART
     Indication: Type 2 diabetes mellitus
     Dosage: 24 IU, QD (13U, 11U- BID)
     Route: 058
     Dates: start: 20000701
  2. INSULIN ASPART [Suspect]
     Active Substance: INSULIN ASPART
     Dosage: 26 IU, QD (14U, 12U- BID)
     Route: 058
     Dates: start: 20220724
  3. ACARBOSE [Suspect]
     Active Substance: ACARBOSE
     Indication: Type 2 diabetes mellitus
     Dosage: 50 MG, BID
     Route: 048
     Dates: start: 20000701
  4. WARFARIN SODIUM [Suspect]
     Active Substance: WARFARIN SODIUM
     Indication: Atrial fibrillation
     Dosage: 3 MG, QD
     Route: 048
     Dates: start: 20000701
  5. PRAVASTATIN SODIUM [Suspect]
     Active Substance: PRAVASTATIN SODIUM
     Indication: Hypertension
     Dosage: 20 MG, QD
     Route: 048
     Dates: start: 19930801
  6. HYDROCHLOROTHIAZIDE [Suspect]
     Active Substance: HYDROCHLOROTHIAZIDE
     Indication: Hypertension
     Dosage: 20 MG, BID
     Route: 048
     Dates: start: 19930801
  7. FOSINOPRIL SODIUM [Suspect]
     Active Substance: FOSINOPRIL SODIUM
     Indication: Hypertension
     Dosage: 10 MG, QD
     Route: 048
     Dates: start: 19930801
  8. SPIRONOLACTONE [Suspect]
     Active Substance: SPIRONOLACTONE
     Indication: Hypertension
     Dosage: 20 MG, BID
     Route: 048
     Dates: start: 19930801

REACTIONS (2)
  - Hepatic function abnormal [Recovering/Resolving]
  - Hepatic function abnormal [Recovering/Resolving]

NARRATIVE: CASE EVENT DATE: 20220724
